FAERS Safety Report 11810885 (Version 2)
Quarter: 2016Q2

REPORT INFORMATION
  Report Type: Spontaneous
  Country: US (occurrence: US)
  Receive Date: 20151208
  Receipt Date: 20160511
  Transmission Date: 20160815
  Serious: No
  Sender: FDA-Public Use
  Company Number: US-ACTELION PHARMACEUTICALS US, INC.-A-US2015-128124

PATIENT
  Age: 75 Year
  Sex: Female

DRUGS (19)
  1. MULTIVITAMIN [Concomitant]
     Active Substance: VITAMINS
  2. ZOLOFT [Concomitant]
     Active Substance: SERTRALINE HYDROCHLORIDE
  3. PRAVACHOL [Concomitant]
     Active Substance: PRAVASTATIN SODIUM
  4. TARGRETIN [Concomitant]
     Active Substance: BEXAROTENE
  5. POTASSIUM [Concomitant]
     Active Substance: POTASSIUM
  6. CLOBETASOL [Concomitant]
     Active Substance: CLOBETASOL
  7. METHOTREXATE [Concomitant]
     Active Substance: METHOTREXATE
  8. BEXAROTENE. [Concomitant]
     Active Substance: BEXAROTENE
  9. CRESTOR [Concomitant]
     Active Substance: ROSUVASTATIN CALCIUM
  10. HYDROCHLOROTHIAZIDE. [Concomitant]
     Active Substance: HYDROCHLOROTHIAZIDE
  11. FOLIC ACID. [Concomitant]
     Active Substance: FOLIC ACID
  12. KLONOPIN [Concomitant]
     Active Substance: CLONAZEPAM
  13. RESTASIS [Concomitant]
     Active Substance: CYCLOSPORINE
  14. VITAMIN D [Concomitant]
     Active Substance: CHOLECALCIFEROL
  15. MAGNESIUM [Concomitant]
     Active Substance: MAGNESIUM
  16. NORCO [Concomitant]
     Active Substance: ACETAMINOPHEN\HYDROCODONE BITARTRATE
  17. VALCHLOR [Suspect]
     Active Substance: MECHLORETHAMINE
     Indication: MYCOSIS FUNGOIDES
     Dosage: UNK
     Route: 061
     Dates: start: 20150430
  18. ZINC [Concomitant]
     Active Substance: ZINC\ZINC CHLORIDE
  19. CALCIUM [Concomitant]
     Active Substance: CALCIUM

REACTIONS (1)
  - Disease progression [Not Recovered/Not Resolved]
